FAERS Safety Report 10601892 (Version 5)
Quarter: 2015Q1

REPORT INFORMATION
  Report Type: Spontaneous
  Country: SK (occurrence: SK)
  Receive Date: 20141124
  Receipt Date: 20150120
  Transmission Date: 20150720
  Serious: Yes (Hospitalization, Other)
  Sender: FDA-Public Use
  Company Number: SK-ELI_LILLY_AND_COMPANY-SK201409004411

PATIENT
  Age: 36 Year
  Sex: Female

DRUGS (7)
  1. ZYPADHERA [Suspect]
     Active Substance: OLANZAPINE PAMOATE
     Dosage: 300 MG, SINGLE
     Route: 030
     Dates: start: 20140916, end: 20140916
  2. ZYPADHERA [Suspect]
     Active Substance: OLANZAPINE PAMOATE
     Dosage: 300 MG, SINGLE
     Route: 030
     Dates: start: 20141028, end: 20141028
  3. SEROQUEL [Concomitant]
     Active Substance: QUETIAPINE FUMARATE
     Indication: PRODUCT USED FOR UNKNOWN INDICATION
     Dosage: 1000 MG, UNKNOWN
     Route: 065
  4. ZYPADHERA [Suspect]
     Active Substance: OLANZAPINE PAMOATE
     Dosage: 300 MG, SINGLE
     Route: 030
     Dates: start: 20141014, end: 20141014
  5. ZYPADHERA [Suspect]
     Active Substance: OLANZAPINE PAMOATE
     Indication: SCHIZOPHRENIA
     Dosage: 300 MG, SINGLE
     Route: 030
     Dates: start: 20140815, end: 20140815
  6. MAGNESIUM LACTICUM [Concomitant]
     Indication: PRODUCT USED FOR UNKNOWN INDICATION
     Dosage: UNK, UNKNOWN
     Route: 065
  7. ZYPADHERA [Suspect]
     Active Substance: OLANZAPINE PAMOATE
     Dosage: 300 MG, SINGLE
     Route: 030
     Dates: start: 20140930, end: 20140930

REACTIONS (5)
  - Weight increased [Unknown]
  - Pre-eclampsia [Recovered/Resolved]
  - Gastroenteritis clostridial [Recovered/Resolved]
  - Imminent abortion [Unknown]
  - Exposure during pregnancy [Recovered/Resolved]

NARRATIVE: CASE EVENT DATE: 201408
